FAERS Safety Report 5452296-5 (Version None)
Quarter: 2007Q3

REPORT INFORMATION
  Report Type: 
  Country: None (occurrence: None)
  Receive Date: 20070912
  Receipt Date: 20070912
  Transmission Date: 20080115
  Serious: Yes (Disabling)
  Sender: FDA-Public Use
  Company Number: None

PATIENT
  Age: 61 Year
  Sex: Male
  Weight: 88.4514 kg

DRUGS (2)
  1. LIPITOR [Suspect]
  2. CRESTOR [Suspect]

REACTIONS (5)
  - ABDOMINAL PAIN UPPER [None]
  - ASTHENIA [None]
  - BRADYPHRENIA [None]
  - FATIGUE [None]
  - RASH [None]
